FAERS Safety Report 22531459 (Version 1)
Quarter: 2023Q2

REPORT INFORMATION
  Report Type: Spontaneous
  Country: US (occurrence: None)
  Receive Date: 20230606
  Receipt Date: 20230606
  Transmission Date: 20230722
  Serious: Yes (Disabling)
  Sender: FDA-Public Use
  Company Number: None

PATIENT
  Age: 42 Year
  Sex: Female
  Weight: 112.05 kg

DRUGS (1)
  1. BUPRENORPHINE AND NALOXONE SUBLINGUAL [Suspect]
     Active Substance: BUPRENORPHINE HYDROCHLORIDE\NALOXONE HYDROCHLORIDE
     Indication: Drug use disorder
     Dosage: OTHER QUANTITY : 1 TABLET(S);?FREQUENCY : 3 TIMES A DAY;?
     Route: 060
     Dates: start: 20160224

REACTIONS (4)
  - Tooth disorder [None]
  - Dental caries [None]
  - Tooth extraction [None]
  - Tooth injury [None]

NARRATIVE: CASE EVENT DATE: 20220503
